FAERS Safety Report 7265388-5 (Version None)
Quarter: 2011Q1

REPORT INFORMATION
  Report Type: 
  Country: None (occurrence: None)
  Receive Date: 20110131
  Receipt Date: 20110104
  Transmission Date: 20110831
  Serious: Yes (Hospitalization, Other)
  Sender: FDA-Public Use
  Company Number: US-ROCHE-751604

PATIENT
  Sex: Female
  Weight: 88.5 kg

DRUGS (2)
  1. CELLCEPT [Suspect]
     Route: 048
     Dates: start: 20090201
  2. PROGRAF [Concomitant]
     Dates: start: 20090201

REACTIONS (4)
  - TRANSPLANT REJECTION [None]
  - PRODUCT QUALITY ISSUE [None]
  - DRUG INEFFECTIVE [None]
  - HYPERTENSION [None]
